FAERS Safety Report 8422852-0 (Version None)
Quarter: 2012Q2

REPORT INFORMATION
  Report Type: 
  Country: None (occurrence: None)
  Receive Date: 20120608
  Receipt Date: 20120531
  Transmission Date: 20120825
  Serious: Yes (Hospitalization)
  Sender: FDA-Public Use
  Company Number: US-GLAXOSMITHKLINE-A0871789A

PATIENT
  Age: 55 Year
  Sex: Male
  Weight: 84.5 kg

DRUGS (9)
  1. GLIPIZIDE [Concomitant]
  2. LIPITOR [Concomitant]
  3. AVANDIA [Suspect]
     Indication: DIABETES MELLITUS
     Dosage: 8MG PER DAY
  4. PROTONIX [Concomitant]
  5. ALTACE [Concomitant]
  6. TOPROL-XL [Concomitant]
  7. WELLBUTRIN SR [Concomitant]
  8. TRAZODONE HCL [Concomitant]
  9. GLUCOPHAGE [Concomitant]
     Dates: end: 20021001

REACTIONS (4)
  - MYOCARDIAL INFARCTION [None]
  - CONGESTIVE CARDIOMYOPATHY [None]
  - CARDIAC FAILURE CONGESTIVE [None]
  - ISCHAEMIC CARDIOMYOPATHY [None]
